FAERS Safety Report 7646025-4 (Version None)
Quarter: 2011Q3

REPORT INFORMATION
  Report Type: 
  Country: None (occurrence: None)
  Receive Date: 20110801
  Receipt Date: 20110725
  Transmission Date: 20111222
  Serious: Yes (Death, Hospitalization)
  Sender: FDA-Public Use
  Company Number: MX-BRISTOL-MYERS SQUIBB COMPANY-15929284

PATIENT
  Age: 82 Year
  Sex: Female

DRUGS (1)
  1. IRBESARTAN AND HYDROCHLOROTHIAZIDE [Suspect]
     Indication: HYPERTENSION
     Route: 048
     Dates: end: 20101216

REACTIONS (7)
  - HYDROCEPHALUS [None]
  - HEAD INJURY [None]
  - FALL [None]
  - DIZZINESS [None]
  - BLOOD PRESSURE INADEQUATELY CONTROLLED [None]
  - CARDIAC ARREST [None]
  - DIABETES MELLITUS [None]
